FAERS Safety Report 7915337-9 (Version None)
Quarter: 2011Q4

REPORT INFORMATION
  Report Type: 
  Country: None (occurrence: None)
  Receive Date: 20111115
  Receipt Date: 20111104
  Transmission Date: 20120403
  Serious: Yes (Other)
  Sender: FDA-Public Use
  Company Number: PHHY2011FR26421

PATIENT
  Sex: Female
  Weight: 60 kg

DRUGS (17)
  1. MODOPAR [Suspect]
  2. MODOPAR [Suspect]
     Dates: start: 20020219
  3. MODOPAR [Suspect]
  4. PERGOLIDE MESYLATE [Concomitant]
  5. CLONAZEPAM [Concomitant]
     Dosage: 1 DRP, UNK
  6. CLONAZEPAM [Concomitant]
     Dosage: 7 GTT OR 10 GTT
  7. MODOPAR [Suspect]
     Indication: PARKINSON'S DISEASE
     Dosage: 250 MG, TID
     Dates: start: 19970908
  8. MODOPAR [Suspect]
     Dates: start: 19971029
  9. PARLODEL [Suspect]
     Indication: PARKINSON'S DISEASE
     Dates: start: 19950101
  10. AMITRIPTYLINE HCL [Concomitant]
  11. MODOPAR [Suspect]
  12. MODOPAR [Suspect]
  13. MOTILIUM [Concomitant]
     Dosage: 8 DF, 8 TABLETS PER DAY
     Dates: start: 19971029
  14. PARLODEL [Suspect]
     Dates: start: 19970908, end: 20030408
  15. PAROXETINE HCL [Concomitant]
  16. LEVONORGESTREL AND ETHINYL ESTRADIOL [Concomitant]
  17. MODOPAR [Suspect]
     Dates: start: 20020219

REACTIONS (3)
  - COMPULSIVE SHOPPING [None]
  - URINARY TRACT INFECTION ENTEROCOCCAL [None]
  - ESCHERICHIA URINARY TRACT INFECTION [None]
